FAERS Safety Report 17360290 (Version 1)
Quarter: 2020Q1

REPORT INFORMATION
  Report Type: Other
  Country: CA (occurrence: CA)
  Receive Date: 20200203
  Receipt Date: 20200203
  Transmission Date: 20200409
  Serious: No
  Sender: FDA-Public Use
  Company Number: CA-LUPIN PHARMACEUTICALS INC.-2020-00317

PATIENT
  Age: 64 Year
  Sex: Male

DRUGS (3)
  1. CEPHALEXIN. [Suspect]
     Active Substance: CEPHALEXIN
     Indication: HIDRADENITIS
     Dosage: UNK
     Route: 065
  2. CIPROFLOXACIN. [Suspect]
     Active Substance: CIPROFLOXACIN
     Indication: HIDRADENITIS
     Dosage: UNK
     Route: 065
  3. ACITRETIN. [Suspect]
     Active Substance: ACITRETIN
     Indication: HIDRADENITIS
     Dosage: 10 MILLIGRAM, QD (1 EVERY 1 DAYS)
     Route: 065

REACTIONS (1)
  - Drug ineffective [Unknown]
